FAERS Safety Report 6032364-X (Version None)
Quarter: 2009Q1

REPORT INFORMATION
  Report Type: 
  Country: None (occurrence: None)
  Receive Date: 20090107
  Receipt Date: 20081229
  Transmission Date: 20090719
  Serious: Yes (Other)
  Sender: FDA-Public Use
  Company Number: 2008SP025527

PATIENT
  Age: 80 Year
  Sex: Female
  Weight: 55.7924 kg

DRUGS (9)
  1. CLARITIN-D 24 HOUR [Suspect]
     Indication: COUGH
     Dosage: 10 MG;QD;PO
     Route: 048
     Dates: start: 20060101
  2. CLARITIN-D 24 HOUR [Suspect]
     Indication: OFF LABEL USE
     Dosage: 10 MG;QD;PO
     Route: 048
     Dates: start: 20060101
  3. CLARITIN-D 24 HOUR [Suspect]
     Indication: POSTNASAL DRIP
     Dosage: 10 MG;QD;PO
     Route: 048
     Dates: start: 20060101
  4. CILOSTAZOL [Concomitant]
  5. ATENOLOL [Concomitant]
  6. LEVOTHYROXINE SODIUM [Concomitant]
  7. ASPIRIN [Concomitant]
  8. CITRACAL [Concomitant]
  9. CENTRUM SILVER [Concomitant]

REACTIONS (7)
  - ABDOMINAL DISTENSION [None]
  - ANOREXIA [None]
  - ARTHRALGIA [None]
  - BONE PAIN [None]
  - FATIGUE [None]
  - INSOMNIA [None]
  - INTRAOCULAR PRESSURE INCREASED [None]
